FAERS Safety Report 8991257 (Version 1)
Quarter: 2012Q4

REPORT INFORMATION
  Report Type: Report from Study
  Country: CA (occurrence: CA)
  Receive Date: 20121231
  Receipt Date: 20121231
  Transmission Date: 20130627
  Serious: Yes (Other)
  Sender: FDA-Public Use
  Company Number: CA-ROCHE-1167309

PATIENT
  Age: 51 Year
  Sex: Male
  Weight: 111.14 kg

DRUGS (2)
  1. OMALIZUMAB [Suspect]
     Indication: ASTHMA
     Route: 058
     Dates: start: 20080107, end: 20080310
  2. PREDNISONE [Concomitant]

REACTIONS (7)
  - Lung disorder [Not Recovered/Not Resolved]
  - Bronchopulmonary aspergillosis allergic [Unknown]
  - Blood immunoglobulin E increased [Unknown]
  - Productive cough [Unknown]
  - Dyspnoea [Unknown]
  - Wheezing [Unknown]
  - Injection site urticaria [Unknown]
